FAERS Safety Report 13067673 (Version 4)
Quarter: 2017Q3

REPORT INFORMATION
  Report Type: Report from Study
  Country: US (occurrence: US)
  Receive Date: 20161228
  Receipt Date: 20170814
  Transmission Date: 20171127
  Serious: Yes (Other)
  Sender: FDA-Public Use
  Company Number: US-AEGERION PHARMACEUTICAL INC-AEGR002880

PATIENT
  Age: 53 Year
  Sex: Male

DRUGS (35)
  1. EZETIMIBE. [Concomitant]
     Active Substance: EZETIMIBE
     Indication: HYPERCHOLESTEROLAEMIA
     Dosage: 10 MG, QD
     Route: 048
     Dates: start: 20141110
  2. LISINOPRIL. [Concomitant]
     Active Substance: LISINOPRIL
     Indication: HYPERTENSION
     Dosage: 10 MG, QD
     Route: 048
     Dates: start: 20140605
  3. METHOCARBAMOL. [Concomitant]
     Active Substance: METHOCARBAMOL
     Indication: PAIN
     Dosage: 250 MG, PRN
     Route: 048
     Dates: start: 20150723
  4. OXYBUTYNIN [Concomitant]
     Active Substance: OXYBUTYNIN
     Indication: HYPERTONIC BLADDER
     Dosage: 2.5 MG, PRN
     Route: 048
     Dates: start: 20150204
  5. JUXTAPID [Suspect]
     Active Substance: LOMITAPIDE MESYLATE
     Indication: DYSLIPIDAEMIA
     Dosage: 5 MG, UNK
     Route: 048
     Dates: start: 20131023, end: 20131127
  6. JUXTAPID [Suspect]
     Active Substance: LOMITAPIDE MESYLATE
     Indication: DRUG INTOLERANCE
     Dosage: 5 MG, QOD
     Route: 048
     Dates: start: 20131128, end: 20150605
  7. ASPIRIN. [Concomitant]
     Active Substance: ASPIRIN
     Indication: ANTICOAGULANT THERAPY
     Dosage: 81 MG, QD
     Route: 048
     Dates: start: 20100907
  8. ONDANSETRON [Concomitant]
     Active Substance: ONDANSETRON
     Indication: NAUSEA
     Dosage: 4 MG, PRN
     Route: 048
     Dates: start: 20150531
  9. INDOMETHACIN. [Concomitant]
     Active Substance: INDOMETHACIN
     Indication: ANTIBIOTIC PROPHYLAXIS
     Dosage: 25 MG, TID
     Route: 048
     Dates: start: 20150723
  10. BUTALBITAL W/CAFFEINE/PARACETAMOL [Concomitant]
     Active Substance: ACETAMINOPHEN\BUTALBITAL\CAFFEINE
     Indication: PAIN
     Dosage: 1 TABLET, PRN
     Route: 048
     Dates: start: 201508
  11. MELATONIN [Concomitant]
     Active Substance: MELATONIN
     Indication: PRODUCT USED FOR UNKNOWN INDICATION
     Dosage: 3 MG, QHS
     Dates: start: 20150723
  12. MUPIROCIN. [Concomitant]
     Active Substance: MUPIROCIN
     Indication: ANTIBIOTIC PROPHYLAXIS
     Dosage: 1 APPLICATION, BID
     Route: 045
     Dates: start: 20150715
  13. ALPHA LIPOIC ACID [Concomitant]
     Active Substance: .ALPHA.-LIPOIC ACID
     Indication: SUPPLEMENTATION THERAPY
  14. MULTIVITAMIN [Concomitant]
     Active Substance: VITAMINS
     Indication: SUPPLEMENTATION THERAPY
     Dosage: 1 CAPSULE, QD
     Route: 048
  15. ALPRAZOLAM. [Concomitant]
     Active Substance: ALPRAZOLAM
     Indication: ANXIETY
     Dosage: .25 MG, PRN
     Route: 048
     Dates: start: 20150723
  16. FERROUS SULFATE EC [Concomitant]
     Indication: ANAEMIA
     Dosage: 325 MG, QD
     Route: 048
     Dates: start: 201508
  17. SIMETHICONE (DIMETHICONE) [Concomitant]
     Active Substance: DIMETHICONE
     Indication: DYSPEPSIA
     Dosage: 120 MG, QID
     Route: 048
     Dates: start: 20150723
  18. BETA SITOSTEROL [Concomitant]
     Indication: SUPPLEMENTATION THERAPY
  19. METFORMIN [Concomitant]
     Active Substance: METFORMIN HYDROCHLORIDE
     Indication: DIABETES MELLITUS
     Dosage: 1000 MG, QD
     Route: 048
     Dates: start: 2013, end: 20150616
  20. OMEGA 3 [Concomitant]
     Active Substance: OMEGA-3 FATTY ACIDS
     Indication: SUPPLEMENTATION THERAPY
     Dosage: 2000 MG, BID
     Route: 048
  21. PITAVASTATIN. [Concomitant]
     Active Substance: PITAVASTATIN CALCIUM
     Indication: HYPERLIPIDAEMIA
     Dosage: 2 MG, QOD
     Route: 048
     Dates: start: 20150515
  22. POLYETHYLENE GLYCOL [Concomitant]
     Active Substance: POLYETHYLENE GLYCOLS
     Indication: CONSTIPATION
     Dosage: 1 PACKET, QD
     Route: 048
     Dates: start: 20150723
  23. TAMULOSIN [Concomitant]
     Active Substance: TAMSULOSIN
     Indication: URINARY RETENTION
     Dosage: 0.4 MG, QD
     Route: 048
     Dates: start: 20150531
  24. ALFUZOSIN [Concomitant]
     Active Substance: ALFUZOSIN
     Indication: BENIGN PROSTATIC HYPERPLASIA
     Dosage: 10 MG, QD
     Route: 048
     Dates: start: 20141126
  25. AMLODIPINE [Concomitant]
     Active Substance: AMLODIPINE BESYLATE
     Indication: HYPERTENSION
     Dosage: 10 MG, QD
     Route: 048
  26. CLOPIDOGREL [Concomitant]
     Active Substance: CLOPIDOGREL BISULFATE
     Indication: THROMBOSIS PROPHYLAXIS
     Dosage: 75 MG, QD
     Route: 048
     Dates: start: 200508
  27. FAMOTIDINE. [Concomitant]
     Active Substance: FAMOTIDINE
     Indication: DYSPEPSIA
     Dosage: 20 MG, BID
     Route: 048
  28. METFORMIN [Concomitant]
     Active Substance: METFORMIN HYDROCHLORIDE
     Dosage: 2000 MG, UNK
     Route: 048
     Dates: start: 20150616, end: 20150723
  29. PANTOPRAZOLE [Concomitant]
     Active Substance: PANTOPRAZOLE
     Indication: GASTROOESOPHAGEAL REFLUX DISEASE
     Dosage: 40 MG, UNK
     Route: 048
     Dates: start: 201505
  30. PITAVASTATIN. [Concomitant]
     Active Substance: PITAVASTATIN CALCIUM
     Indication: HYPERCHOLESTEROLAEMIA
     Dosage: 2 MG, QW
     Route: 048
     Dates: start: 201401, end: 2014
  31. METOPROLOL TARTRATE. [Concomitant]
     Active Substance: METOPROLOL TARTRATE
     Indication: HYPERTENSION
     Dosage: 25 MG, BID
     Route: 048
     Dates: start: 20150707
  32. OXYCODONE [Concomitant]
     Active Substance: OXYCODONE
     Indication: PAIN
     Dosage: 10 MG, PRN
     Route: 048
     Dates: start: 20150723
  33. ACETAMINOPHEN. [Concomitant]
     Active Substance: ACETAMINOPHEN
     Indication: PAIN
     Dosage: 650 MG, PRN
     Route: 048
     Dates: start: 20150723
  34. GEMFIBROZIL. [Concomitant]
     Active Substance: GEMFIBROZIL
     Indication: HYPERLIPIDAEMIA
     Dosage: 300 MG, BID
     Route: 048
     Dates: start: 20150723
  35. HUMULIN KWIKPEN [Concomitant]
     Indication: DIABETES MELLITUS
     Dosage: 78 UNITS, QD
     Route: 058
     Dates: start: 20150723

REACTIONS (10)
  - Blood glucose increased [Not Recovered/Not Resolved]
  - Off label use [Recovered/Resolved]
  - White blood cell count increased [Recovered/Resolved]
  - Therapy cessation [Not Recovered/Not Resolved]
  - Alanine aminotransferase increased [Unknown]
  - Glycosylated haemoglobin increased [Unknown]
  - Blood cholesterol increased [Not Recovered/Not Resolved]
  - Blood triglycerides increased [Not Recovered/Not Resolved]
  - Chest pain [Recovered/Resolved]
  - Inappropriate schedule of drug administration [Recovered/Resolved]

NARRATIVE: CASE EVENT DATE: 20131023
